FAERS Safety Report 5187683-6 (Version None)
Quarter: 2006Q4

REPORT INFORMATION
  Report Type: 
  Country: None (occurrence: None)
  Receive Date: 20061214
  Receipt Date: 20061128
  Transmission Date: 20070319
  Serious: Yes (Other)
  Sender: FDA-Public Use
  Company Number: 233433

PATIENT
  Age: 65 Year
  Sex: Male

DRUGS (1)
  1. AVASTIN [Suspect]
     Indication: CHOROIDAL NEOVASCULARISATION
     Dosage: 2.5  MG, INTRAVITREAL
     Dates: start: 20060708, end: 20060708

REACTIONS (2)
  - BLINDNESS [None]
  - RETINAL HAEMORRHAGE [None]
